FAERS Safety Report 8412707-X (Version None)
Quarter: 2012Q2

REPORT INFORMATION
  Report Type: 
  Country: None (occurrence: None)
  Receive Date: 20120531
  Receipt Date: 20120531
  Transmission Date: 20120825
  Serious: Yes (Other)
  Sender: FDA-Public Use
  Company Number: None

PATIENT
  Age: 56 Year
  Sex: Female
  Weight: 70.3075 kg

DRUGS (1)
  1. LEVOFLOXACIN [Suspect]
     Indication: SINUSITIS
     Dosage: 500 MG 1 EVERY AM PO
     Route: 048
     Dates: start: 20111112

REACTIONS (9)
  - ARTHRALGIA [None]
  - TENDON PAIN [None]
  - ABASIA [None]
  - NECK PAIN [None]
  - DIZZINESS [None]
  - NAUSEA [None]
  - HEADACHE [None]
  - MUSCULOSKELETAL STIFFNESS [None]
  - QUALITY OF LIFE DECREASED [None]
